FAERS Safety Report 9160192 (Version 1)
Quarter: 2013Q1

REPORT INFORMATION
  Report Type: Spontaneous
  Country: US (occurrence: US)
  Receive Date: 20130313
  Receipt Date: 20130313
  Transmission Date: 20140127
  Serious: Yes (Other)
  Sender: FDA-Public Use
  Company Number: US-ROCHE-1200148

PATIENT
  Age: 66 Year
  Sex: Female

DRUGS (8)
  1. VALIUM [Suspect]
     Indication: PRODUCT USED FOR UNKNOWN INDICATION
     Route: 065
  2. ARMOUR THYROID [Suspect]
     Indication: HYPOTHYROIDISM
     Route: 065
     Dates: start: 1996
  3. ARMOUR THYROID [Suspect]
     Route: 065
     Dates: end: 20130210
  4. PROBIOTIC [Suspect]
     Indication: IRRITABLE BOWEL SYNDROME
     Route: 065
  5. INDERAL [Concomitant]
     Route: 065
  6. VITAMIN C [Concomitant]
     Indication: HYPOVITAMINOSIS
     Route: 065
  7. VITAMIN D [Concomitant]
     Indication: HYPOVITAMINOSIS
     Route: 065
  8. ZINC [Concomitant]
     Indication: HYPOVITAMINOSIS
     Route: 065

REACTIONS (12)
  - Hypertension [Unknown]
  - Dizziness [Not Recovered/Not Resolved]
  - Ulcer [Recovering/Resolving]
  - Gastrooesophageal reflux disease [Unknown]
  - Cholecystitis [Recovered/Resolved]
  - Blood thyroid stimulating hormone decreased [Unknown]
  - Headache [Unknown]
  - Rash [Unknown]
  - Dyspepsia [Not Recovered/Not Resolved]
  - Dysgeusia [Not Recovered/Not Resolved]
  - Fall [Recovered/Resolved]
  - Wrist fracture [Recovered/Resolved]
